FAERS Safety Report 15561103 (Version 3)
Quarter: 2019Q3

REPORT INFORMATION
  Report Type: Spontaneous
  Country: US (occurrence: US)
  Receive Date: 20181029
  Receipt Date: 20190723
  Transmission Date: 20191004
  Serious: No
  Sender: FDA-Public Use
  Company Number: US-PFIZER INC-2018438072

PATIENT
  Age: 37 Year
  Sex: Female
  Weight: 60.32 kg

DRUGS (5)
  1. XYREM [Concomitant]
     Active Substance: SODIUM OXYBATE
     Dosage: UNK [MAX DOSE]
  2. CYMBALTA [Concomitant]
     Active Substance: DULOXETINE HYDROCHLORIDE
     Dosage: 90 MG, DAILY
     Route: 048
  3. LYRICA [Suspect]
     Active Substance: PREGABALIN
     Dosage: 100 MG, 3X/DAY
     Route: 048
  4. QUILLIVANT XR [Concomitant]
     Active Substance: METHYLPHENIDATE HYDROCHLORIDE
     Dosage: UNK
  5. LYRICA [Suspect]
     Active Substance: PREGABALIN
     Indication: FIBROMYALGIA
     Dosage: 100 MG, UNK

REACTIONS (11)
  - Memory impairment [Unknown]
  - Cognitive disorder [Unknown]
  - Panic attack [Unknown]
  - Aphasia [Unknown]
  - Fatigue [Recovered/Resolved]
  - Impaired work ability [Not Recovered/Not Resolved]
  - Sleep disorder [Unknown]
  - Anxiety [Unknown]
  - Arthralgia [Unknown]
  - Pain [Recovering/Resolving]
  - Drug ineffective [Not Recovered/Not Resolved]
